FAERS Safety Report 17347504 (Version 1)
Quarter: 2020Q1

REPORT INFORMATION
  Report Type: Spontaneous
  Country: US (occurrence: US)
  Receive Date: 20200129
  Receipt Date: 20200129
  Transmission Date: 20200409
  Serious: Yes (Life-Threatening, Disabling, Other)
  Sender: FDA-Public Use
  Company Number: None

PATIENT
  Age: 25 Year
  Sex: Female
  Weight: 45 kg

DRUGS (1)
  1. ALPRAZOLAM. [Suspect]
     Active Substance: ALPRAZOLAM
     Indication: INSOMNIA
     Dosage: ?          QUANTITY:1 TABLET(S);?
     Route: 048
     Dates: start: 20131105, end: 20151029

REACTIONS (43)
  - Tunnel vision [None]
  - Panic attack [None]
  - Amnesia [None]
  - Abdominal pain [None]
  - Hyperhidrosis [None]
  - Insomnia [None]
  - Dysmenorrhoea [None]
  - Constipation [None]
  - Gait disturbance [None]
  - Taste disorder [None]
  - Depersonalisation/derealisation disorder [None]
  - Anxiety [None]
  - Nightmare [None]
  - Antisocial behaviour [None]
  - Dysarthria [None]
  - Menstrual disorder [None]
  - Pollakiuria [None]
  - Crying [None]
  - Myalgia [None]
  - Appetite disorder [None]
  - Emotional poverty [None]
  - Vision blurred [None]
  - Body temperature fluctuation [None]
  - Reduced facial expression [None]
  - Personality change [None]
  - Disturbance in attention [None]
  - Blepharospasm [None]
  - Fear [None]
  - Fatigue [None]
  - Skin exfoliation [None]
  - Confusional state [None]
  - Fine motor skill dysfunction [None]
  - Depression [None]
  - Abdominal pain upper [None]
  - Irritability [None]
  - Nausea [None]
  - Thirst [None]
  - Tremor [None]
  - Feeling abnormal [None]
  - Tension headache [None]
  - Weight fluctuation [None]
  - Dizziness [None]
  - Hypoaesthesia [None]

NARRATIVE: CASE EVENT DATE: 20151029
